FAERS Safety Report 4639199-0 (Version None)
Quarter: 2005Q2

REPORT INFORMATION
  Report Type: 
  Country: None (occurrence: None)
  Receive Date: 20050418
  Receipt Date: 20050405
  Transmission Date: 20051028
  Serious: No
  Sender: FDA-Public Use
  Company Number: 2005AP02073

PATIENT
  Age: 35 Year
  Sex: Female
  Weight: 79 kg

DRUGS (1)
  1. MARCAINE [Suspect]
     Indication: SPINAL ANAESTHESIA
     Dosage: 1.8 ML IT
     Route: 038
     Dates: start: 20050317

REACTIONS (4)
  - ANAESTHETIC COMPLICATION [None]
  - HYPOTENSION [None]
  - OEDEMA [None]
  - PRURITUS [None]
